FAERS Safety Report 5094523-2 (Version None)
Quarter: 2006Q3

REPORT INFORMATION
  Report Type: 
  Country: None (occurrence: None)
  Receive Date: 20060731
  Receipt Date: 20060421
  Transmission Date: 20061208
  Serious: No
  Sender: FDA-Public Use
  Company Number: 2006PV012576

PATIENT
  Age: 56 Year
  Sex: Male
  Weight: 122.4712 kg

DRUGS (2)
  1. BYETTA [Suspect]
     Indication: DIABETES MELLITUS NON-INSULIN-DEPENDENT
     Dosage: 5 MCG;QPM;SC
     Route: 058
     Dates: start: 20060417
  2. ACTOPLUS MET [Concomitant]

REACTIONS (4)
  - BLOOD GLUCOSE INCREASED [None]
  - COLD SWEAT [None]
  - FATIGUE [None]
  - PALLOR [None]
